FAERS Safety Report 9219791 (Version 2)
Quarter: 2013Q2

REPORT INFORMATION
  Report Type: Spontaneous
  Country: JP (occurrence: JP)
  Receive Date: 20130409
  Receipt Date: 20130422
  Transmission Date: 20140414
  Serious: Yes (Life-Threatening, Other)
  Sender: FDA-Public Use
  Company Number: JP-ASTRAZENECA-2013SE20865

PATIENT
  Age: 45 Year
  Sex: Female
  Weight: 51 kg

DRUGS (5)
  1. DIPRIVAN [Suspect]
     Indication: INDUCTION OF ANAESTHESIA
     Route: 042
     Dates: start: 20130322, end: 20130322
  2. MUSCULAX [Suspect]
     Indication: HYPOTONIA
     Route: 042
     Dates: start: 20130322, end: 20130322
  3. ULTIVA [Suspect]
     Indication: ANAESTHESIA PROCEDURE
     Route: 042
     Dates: start: 20130322, end: 20130322
  4. ATROPINE SULFATE HYDRATE [Concomitant]
     Route: 030
     Dates: start: 20130322, end: 20130322
  5. ATARAX-P [Concomitant]
     Route: 030
     Dates: start: 20130322, end: 20130322

REACTIONS (4)
  - Laryngeal oedema [Recovered/Resolved]
  - Tongue oedema [Unknown]
  - Erythema [Unknown]
  - Rash [Recovered/Resolved]
